FAERS Safety Report 8977770 (Version 3)
Quarter: 2014Q2

REPORT INFORMATION
  Report Type: Report from Study
  Country: FR (occurrence: FR)
  Receive Date: 20121219
  Receipt Date: 20140625
  Transmission Date: 20141212
  Serious: Yes (Other)
  Sender: FDA-Public Use
  Company Number: PHHY2012FR113651

PATIENT
  Age: 73 Year
  Sex: Female
  Weight: 63 kg

DRUGS (10)
  1. AMN107 [Suspect]
     Indication: CHRONIC MYELOID LEUKAEMIA
     Dosage: 400 MG, QD
     Route: 048
     Dates: start: 20120114
  2. AMN107 [Suspect]
     Dosage: 400 MG, QD
     Route: 048
     Dates: start: 20120221
  3. AMN107 [Suspect]
     Dosage: 200 MG, QD
     Route: 048
     Dates: start: 20120823, end: 20121007
  4. AMN107 [Suspect]
     Dosage: 400 MG, QD
     Route: 048
     Dates: start: 20121008, end: 20121113
  5. AMN107 [Suspect]
     Dosage: 400 MG, QD
     Route: 048
     Dates: start: 20121118, end: 20121122
  6. AMN107 [Suspect]
     Dosage: 200 MG, QD
     Route: 048
     Dates: start: 20121127, end: 20121128
  7. RAMIPRIL [Concomitant]
     Indication: HYPERTENSION
     Dosage: 10 MG, QD
     Dates: start: 201210
  8. SPIRONOLACTONE ALTIZIDE [Concomitant]
     Indication: HYPERTENSION
     Dates: start: 2005, end: 201210
  9. KARDEGIC [Concomitant]
     Indication: TRANSIENT ISCHAEMIC ATTACK
     Dosage: 75 MG, QD
     Dates: start: 2005, end: 20120822
  10. KARDEGIC [Concomitant]
     Dosage: 75 MG, QOD
     Dates: start: 20120823

REACTIONS (10)
  - Muscular weakness [Not Recovered/Not Resolved]
  - Drug intolerance [Not Recovered/Not Resolved]
  - Dizziness [Not Recovered/Not Resolved]
  - Fatigue [Not Recovered/Not Resolved]
  - Nervousness [Not Recovered/Not Resolved]
  - Palpitations [Not Recovered/Not Resolved]
  - Nausea [Not Recovered/Not Resolved]
  - Headache [Not Recovered/Not Resolved]
  - Tremor [Not Recovered/Not Resolved]
  - Gait disturbance [Unknown]
